FAERS Safety Report 23862005 (Version 2)
Quarter: 2024Q2

REPORT INFORMATION
  Report Type: Spontaneous
  Country: US (occurrence: US)
  Receive Date: 20240516
  Receipt Date: 20240517
  Transmission Date: 20240716
  Serious: No
  Sender: FDA-Public Use
  Company Number: US-TEVA-VS-3193063

PATIENT
  Age: 43 Year
  Sex: Female

DRUGS (2)
  1. FLUTICASONE PROPIONATE AND SALMETEROL [Suspect]
     Active Substance: FLUTICASONE PROPIONATE\SALMETEROL XINAFOATE
     Indication: Product used for unknown indication
     Dosage: 100/50 MCG/DOSE-MCG/DOSE,?250 MCG / 50 MCG
     Route: 055
  2. FLUTICASONE PROPIONATE AND SALMETEROL [Suspect]
     Active Substance: FLUTICASONE PROPIONATE\SALMETEROL XINAFOATE

REACTIONS (6)
  - Panic reaction [Unknown]
  - Poor quality product administered [Unknown]
  - Product storage error [Unknown]
  - Nervousness [Unknown]
  - Product storage error [Unknown]
  - Malaise [Unknown]

NARRATIVE: CASE EVENT DATE: 20240101
